FAERS Safety Report 5785411-4 (Version None)
Quarter: 2008Q2

REPORT INFORMATION
  Report Type: 
  Country: None (occurrence: None)
  Receive Date: 20080605
  Receipt Date: 20080320
  Transmission Date: 20081010
  Serious: No
  Sender: FDA-Public Use
  Company Number: A0710208A

PATIENT
  Age: 42 Year
  Sex: Female

DRUGS (4)
  1. ALLI [Suspect]
  2. LITHIUM CARBONATE [Concomitant]
  3. PROZAC [Concomitant]
  4. RISPERDAL [Concomitant]

REACTIONS (3)
  - PHARMACEUTICAL PRODUCT COMPLAINT [None]
  - RECTAL DISCHARGE [None]
  - WEIGHT INCREASED [None]
